FAERS Safety Report 10402344 (Version 4)
Quarter: 2015Q3

REPORT INFORMATION
  Report Type: Report from Study
  Country: JP (occurrence: JP)
  Receive Date: 20140822
  Receipt Date: 20150727
  Transmission Date: 20151125
  Serious: Yes (Hospitalization, Other)
  Sender: FDA-Public Use
  Company Number: JP-OTSUKA-JP-2014-16926

PATIENT

DRUGS (12)
  1. TRICHLORMETHIAZIDE [Concomitant]
     Active Substance: TRICHLORMETHIAZIDE
     Indication: CARDIAC FAILURE
     Dosage: 2 MG/DAY
     Route: 048
  2. TOLVAPTAN [Suspect]
     Active Substance: TOLVAPTAN
     Indication: OEDEMA DUE TO CARDIAC DISEASE
     Dosage: 7.5 MG, QD
     Route: 048
     Dates: start: 20140705, end: 20140714
  3. MAINTATE [Concomitant]
     Active Substance: BISOPROLOL FUMARATE
     Indication: CARDIAC FAILURE
     Dosage: 1.25 MG/DAY
     Route: 048
     Dates: start: 20140703, end: 20140715
  4. HANP [Concomitant]
     Active Substance: CARPERITIDE
     Indication: CARDIAC FAILURE
     Dosage: 2000 ?G/DAY
     Route: 041
     Dates: start: 20140701, end: 20140704
  5. MAGMITT [Concomitant]
     Active Substance: MAGNESIUM OXIDE
     Indication: CONSTIPATION
     Dosage: 330 MG/DAY
     Route: 048
  6. ALDACTONE A [Concomitant]
     Active Substance: SPIRONOLACTONE
     Indication: CARDIAC FAILURE
     Dosage: 25 MG/DAY
     Route: 048
     Dates: start: 20140706, end: 20140715
  7. WARFARIN K [Suspect]
     Active Substance: WARFARIN POTASSIUM
     Indication: CEREBROVASCULAR ACCIDENT PROPHYLAXIS
     Dosage: 0.25 MG/DAY
     Route: 048
  8. LIPIDIL [Concomitant]
     Active Substance: FENOFIBRATE
     Indication: DYSLIPIDAEMIA
     Dosage: 80 MG/DAY
     Route: 048
  9. DIPHENHYDRAMINE. [Concomitant]
     Active Substance: DIPHENHYDRAMINE
     Indication: PRURITUS
     Dosage: 50 G/DAY
     Dates: start: 20140712, end: 20140712
  10. LASIX M [Concomitant]
     Active Substance: FUROSEMIDE
     Indication: CARDIAC FAILURE
     Dosage: 20 MG/DAY
     Route: 048
     Dates: end: 20140714
  11. FAMOTIDINE. [Concomitant]
     Active Substance: FAMOTIDINE
     Indication: PROPHYLAXIS AGAINST GASTROINTESTINAL ULCER
     Dosage: 10 MG/DAY
     Route: 048
     Dates: end: 20140715
  12. THYRADIN-S [Concomitant]
     Active Substance: LEVOTHYROXINE
     Indication: HYPOTHYROIDISM
     Dosage: 50 ?G/DAY
     Route: 048

REACTIONS (4)
  - Shock [Unknown]
  - Cardio-respiratory arrest [Unknown]
  - Haemothorax [Recovered/Resolved with Sequelae]
  - Thrombosis [Recovered/Resolved]

NARRATIVE: CASE EVENT DATE: 20140714
